FAERS Safety Report 15856961 (Version 1)
Quarter: 2019Q1

REPORT INFORMATION
  Report Type: Spontaneous
  Country: US (occurrence: US)
  Receive Date: 20190123
  Receipt Date: 20190123
  Transmission Date: 20190417
  Serious: No
  Sender: FDA-Public Use
  Company Number: US-CIPLA LTD.-2018US23996

PATIENT

DRUGS (3)
  1. SYNTHROID [Concomitant]
     Active Substance: LEVOTHYROXINE SODIUM
     Indication: HYPERTHYROIDISM
     Dosage: 0.75 MG, QD (ONCE A DAY)
     Route: 065
  2. LOVASTATIN. [Concomitant]
     Active Substance: LOVASTATIN
     Indication: BLOOD CHOLESTEROL ABNORMAL
     Dosage: 10 MG, TWICE A WEEK
     Route: 065
  3. GABAPENTIN. [Suspect]
     Active Substance: GABAPENTIN
     Indication: POST HERPETIC NEURALGIA
     Dosage: 300 MG, QD (ONCE A DAY) AT NIGHT
     Route: 048
     Dates: start: 20181214, end: 20181214

REACTIONS (6)
  - Fatigue [Recovered/Resolved]
  - Malaise [Recovered/Resolved]
  - Diplopia [Recovered/Resolved]
  - Trance [Recovered/Resolved]
  - Vision blurred [Recovered/Resolved]
  - Feeling abnormal [Recovered/Resolved]

NARRATIVE: CASE EVENT DATE: 20181215
